FAERS Safety Report 4860372-0 (Version None)
Quarter: 2005Q4

REPORT INFORMATION
  Report Type: 
  Country: None (occurrence: None)
  Receive Date: 20051215
  Receipt Date: 20051202
  Transmission Date: 20060501
  Serious: Yes (Other)
  Sender: FDA-Public Use
  Company Number: MK200512-0062-1

PATIENT
  Age: 64 Year
  Sex: Male

DRUGS (9)
  1. NEUTROSPEC [Suspect]
     Indication: PYREXIA
     Dosage: 19 MCI, ONE TIME, IV
     Route: 042
     Dates: start: 20051202, end: 20051202
  2. SPIRONOLACTONE [Concomitant]
  3. COREG [Concomitant]
  4. PLAVIX [Concomitant]
  5. EPOETIN INJECTION [Concomitant]
  6. NEXIUM [Concomitant]
  7. NEURONTIN [Concomitant]
  8. MAGNESIUM OXIDE [Concomitant]
  9. NITROGLYCERIN [Concomitant]

REACTIONS (9)
  - BLOOD PRESSURE DECREASED [None]
  - DEFAECATION URGENCY [None]
  - DYSPNOEA [None]
  - FLUSHING [None]
  - HEADACHE [None]
  - MALAISE [None]
  - NAUSEA [None]
  - OXYGEN SATURATION DECREASED [None]
  - TACHYCARDIA [None]
